FAERS Safety Report 7000686-1 (Version None)
Quarter: 2010Q3

REPORT INFORMATION
  Report Type: 
  Country: None (occurrence: None)
  Receive Date: 20100920
  Receipt Date: 20070517
  Transmission Date: 20110219
  Serious: Yes (Disabling, Other)
  Sender: FDA-Public Use
  Company Number: US-ASTRAZENECA-2006UW23680

PATIENT
  Age: 41 Year
  Sex: Female
  Weight: 70.3 kg

DRUGS (19)
  1. SEROQUEL [Suspect]
     Indication: ANXIETY
     Dosage: 25-175 MG
     Route: 048
     Dates: start: 19990830
  2. SEROQUEL [Suspect]
     Indication: PANIC ATTACK
     Dosage: 25-175 MG
     Route: 048
     Dates: start: 19990830
  3. SEROQUEL [Suspect]
     Indication: SLEEP DISORDER
     Dosage: 25-175 MG
     Route: 048
     Dates: start: 19990830
  4. SEROQUEL [Suspect]
     Dosage: 25 MG, FOUR TO SIX TIMES A DAY
     Route: 048
     Dates: start: 19990801, end: 20060101
  5. SEROQUEL [Suspect]
     Dosage: 25 MG, FOUR TO SIX TIMES A DAY
     Route: 048
     Dates: start: 19990801, end: 20060101
  6. SEROQUEL [Suspect]
     Dosage: 25 MG, FOUR TO SIX TIMES A DAY
     Route: 048
     Dates: start: 19990801, end: 20060101
  7. SEROQUEL [Suspect]
     Dosage: 25 MG, FOUR TO SIX TIMES A DAY
     Route: 048
  8. SEROQUEL [Suspect]
     Dosage: 25 MG, FOUR TO SIX TIMES A DAY
     Route: 048
  9. SEROQUEL [Suspect]
     Dosage: 25 MG, FOUR TO SIX TIMES A DAY
     Route: 048
  10. PAXIL [Concomitant]
     Dosage: 20-30 MG
     Dates: start: 19980915
  11. CLONAZEPAM [Concomitant]
     Dosage: 0.5-1 MG
     Dates: start: 19980915
  12. BUSPAR [Concomitant]
     Dosage: 10-15 MG
     Dates: start: 19980915
  13. TRAZODONE HCL [Concomitant]
     Dosage: 50 MG ONE HALF TABLET AT NIGHT
     Dates: start: 19990217
  14. ULTRAM [Concomitant]
     Dates: start: 19990217
  15. PREMARIN [Concomitant]
     Dates: start: 19990217
  16. REMERON [Concomitant]
     Dates: start: 19980901
  17. AMBIEN [Concomitant]
     Dosage: 10-20 MG
     Dates: start: 20000125
  18. WELLBUTRIN [Concomitant]
     Dosage: 150-300 MG
     Dates: start: 20000709
  19. NEURONTIN [Concomitant]
     Dosage: 300-1800 MG
     Dates: start: 20010716

REACTIONS (4)
  - DIABETES MELLITUS [None]
  - HYPERGLYCAEMIA [None]
  - PANCREATITIS [None]
  - PANCREATITIS ACUTE [None]
